FAERS Safety Report 25902765 (Version 1)
Quarter: 2025Q4

REPORT INFORMATION
  Report Type: Report from Study
  Country: US (occurrence: US)
  Receive Date: 20251009
  Receipt Date: 20251009
  Transmission Date: 20260117
  Serious: Yes (Other)
  Sender: BAYER HEALTHCARE LLC
  Company Number: US-BAYER-2025A132694

PATIENT
  Age: 3 Year
  Sex: Female

DRUGS (1)
  1. ASPIRIN [Suspect]
     Active Substance: ASPIRIN
     Indication: Moyamoya disease
     Dosage: UNK

REACTIONS (4)
  - Cerebral haemorrhage [None]
  - Product use in unapproved indication [None]
  - Product prescribing issue [None]
  - Product administered to patient of inappropriate age [None]
